FAERS Safety Report 21422735 (Version 1)
Quarter: 2022Q4

REPORT INFORMATION
  Report Type: Spontaneous
  Country: US (occurrence: US)
  Receive Date: 20221007
  Receipt Date: 20221007
  Transmission Date: 20230112
  Serious: Yes (Other)
  Sender: FDA-Public Use
  Company Number: US-PFIZER INC-PV202200077563

PATIENT
  Age: 72 Year
  Sex: Female

DRUGS (1)
  1. INLYTA [Suspect]
     Active Substance: AXITINIB
     Dosage: UNK
     Dates: end: 20220921

REACTIONS (5)
  - Blood pressure increased [Unknown]
  - Diarrhoea [Unknown]
  - Hepatic lesion [Unknown]
  - Balance disorder [Unknown]
  - Dizziness [Unknown]
